FAERS Safety Report 15060564 (Version 1)
Quarter: 2018Q2

REPORT INFORMATION
  Report Type: Spontaneous
  Country: US (occurrence: US)
  Receive Date: 20180605
  Receipt Date: 20180605
  Transmission Date: 20180711
  Serious: Yes (Other)
  Sender: FDA-Public Use
  Company Number: None

PATIENT
  Age: 41 Year
  Sex: Male
  Weight: 94.5 kg

DRUGS (3)
  1. MULTI-VIT [Concomitant]
     Active Substance: VITAMINS
  2. FINASTERIDE. [Suspect]
     Active Substance: FINASTERIDE
     Indication: ANDROGENETIC ALOPECIA
     Dosage: ?          QUANTITY:1 DF DOSAGE FORM;?
     Route: 048
     Dates: start: 20180505, end: 20180518
  3. BIOTIN [Concomitant]
     Active Substance: BIOTIN

REACTIONS (2)
  - Erectile dysfunction [None]
  - Sexual dysfunction [None]

NARRATIVE: CASE EVENT DATE: 20180518
